FAERS Safety Report 25955748 (Version 6)
Quarter: 2025Q4

REPORT INFORMATION
  Report Type: Spontaneous
  Country: EU (occurrence: EU)
  Receive Date: 20251024
  Receipt Date: 20251121
  Transmission Date: 20260117
  Serious: Yes (Hospitalization, Other)
  Sender: CELLTRION
  Company Number: EU-ROCHE-10000405129

PATIENT

DRUGS (36)
  1. RITUXIMAB [Suspect]
     Active Substance: RITUXIMAB
     Indication: Primary effusion lymphoma
     Dosage: COMPLETED 6 CYCLES OF R-CHOP/ADDITIONAL INFORMATION ON DRUG R-CHOP REGIMEN
  2. RITUXIMAB [Suspect]
     Active Substance: RITUXIMAB
     Indication: Kaposi sarcoma inflammatory cytokine syndrome
     Dosage: UNK, CYCLE ( FOLLOWED BY 6 CYCLES OF R-CHOP)
  3. RITUXIMAB [Suspect]
     Active Substance: RITUXIMAB
     Indication: Viraemia
     Dosage: UNK, DOSE REDUCED
  4. RITUXIMAB [Suspect]
     Active Substance: RITUXIMAB
     Dosage: UNK, RITUXIMAB MONOTHERAPY
  5. RITUXIMAB [Suspect]
     Active Substance: RITUXIMAB
     Dosage: UNK
     Route: 065
  6. CYCLOPHOSPHAMIDE [Suspect]
     Active Substance: CYCLOPHOSPHAMIDE
     Indication: Primary effusion lymphoma
     Dosage: CVP REGIMEN
     Dates: start: 2024
  7. CYCLOPHOSPHAMIDE [Suspect]
     Active Substance: CYCLOPHOSPHAMIDE
     Indication: Kaposi sarcoma inflammatory cytokine syndrome
     Dosage: R-CHOP REGIMEN
  8. CYCLOPHOSPHAMIDE [Suspect]
     Active Substance: CYCLOPHOSPHAMIDE
     Dosage: CVP REGIMEN AND 6 CYCLES OF R-CHOP
     Route: 065
  9. CYCLOPHOSPHAMIDE [Suspect]
     Active Substance: CYCLOPHOSPHAMIDE
     Dosage: UNK, CYCLE (6 CYCLES OF R-CHOP)
  10. CYCLOPHOSPHAMIDE [Suspect]
     Active Substance: CYCLOPHOSPHAMIDE
     Dosage: UNK, DOSE REDUCED
  11. CYCLOPHOSPHAMIDE [Suspect]
     Active Substance: CYCLOPHOSPHAMIDE
     Dosage: UNK
     Route: 065
  12. DOXORUBICIN [Suspect]
     Active Substance: DOXORUBICIN
     Indication: Primary effusion lymphoma
     Dosage: COMPLETED 6 CYCLES OF R-CHOP/ ADDITIONAL INFORMATION ON DRUG R-CHOP REGIMEN
     Route: 065
  13. DOXORUBICIN [Suspect]
     Active Substance: DOXORUBICIN
     Indication: Kaposi sarcoma inflammatory cytokine syndrome
     Dosage: UNK, CYCLE (FULL-DOSE DOXORUBICIN IN CYCLES II AND III)
     Route: 065
  14. DOXORUBICIN [Suspect]
     Active Substance: DOXORUBICIN
     Dosage: UNK, DOSE REDUCED
  15. DOXORUBICIN [Suspect]
     Active Substance: DOXORUBICIN
     Dosage: REDUCED-DOSE FOR FIRST CYCLE
     Route: 065
  16. VINCRISTINE [Suspect]
     Active Substance: VINCRISTINE
     Indication: Primary effusion lymphoma
     Dosage: CVP REGIMEN
     Dates: start: 2024
  17. VINCRISTINE [Suspect]
     Active Substance: VINCRISTINE
     Indication: Kaposi sarcoma inflammatory cytokine syndrome
     Dosage: R-CHOP REGIMEN
  18. VINCRISTINE [Suspect]
     Active Substance: VINCRISTINE
     Dosage: CVP REGIMEN AND 6 CYCLES OF R-CHOP
     Route: 065
  19. VINCRISTINE [Suspect]
     Active Substance: VINCRISTINE
     Dosage: UNK, CYCLE (AND 6 CYCLES OF R-CHOP)
  20. VINCRISTINE [Suspect]
     Active Substance: VINCRISTINE
     Dosage: UNK, DOSE REDUCED
  21. VINCRISTINE [Suspect]
     Active Substance: VINCRISTINE
     Dosage: UNK
     Route: 065
  22. PREDNISONE [Suspect]
     Active Substance: PREDNISONE
     Indication: Primary effusion lymphoma
     Dosage: COMPLETED 6 CYCLES OF R-CHOP/ ADDITIONAL INFORMATION ON DRUG R-CHOP REGIMEN
  23. PREDNISONE [Suspect]
     Active Substance: PREDNISONE
     Indication: Kaposi sarcoma inflammatory cytokine syndrome
     Dosage: UNK, CVP REGIMEN
  24. PREDNISONE [Suspect]
     Active Substance: PREDNISONE
     Dosage: UNK
     Route: 065
  25. PREDNISOLONE [Suspect]
     Active Substance: PREDNISOLONE
     Indication: Primary effusion lymphoma
     Dosage: ADDITIONAL INFORMATION ON DRUG CVP REGIMEN
     Dates: start: 2024
  26. PREDNISOLONE [Suspect]
     Active Substance: PREDNISOLONE
     Dosage: COMPLETED 6 CYCLES OF R-CHOP
     Route: 065
  27. PREDNISOLONE [Suspect]
     Active Substance: PREDNISOLONE
     Dosage: UNK, DOSE REDUCED
  28. EVEROLIMUS [Suspect]
     Active Substance: EVEROLIMUS
     Indication: Prophylaxis against transplant rejection
     Dosage: UNK
     Route: 065
  29. EVEROLIMUS [Suspect]
     Active Substance: EVEROLIMUS
     Indication: Immunosuppressant drug therapy
  30. TACROLIMUS [Suspect]
     Active Substance: TACROLIMUS
     Indication: Prophylaxis against transplant rejection
     Dosage: UNK
     Route: 065
  31. DOXORUBICIN [Suspect]
     Active Substance: DOXORUBICIN
     Indication: Primary effusion lymphoma
     Dosage: UNK
     Route: 065
  32. DOXORUBICIN [Suspect]
     Active Substance: DOXORUBICIN
     Indication: Kaposi sarcoma inflammatory cytokine syndrome
  33. TACROLIMUS [Concomitant]
     Active Substance: TACROLIMUS
     Indication: Immunosuppressant drug therapy
     Dosage: UNK
     Route: 065
     Dates: start: 2024, end: 2024
  34. EVEROLIMUS [Concomitant]
     Active Substance: EVEROLIMUS
     Indication: Prophylaxis against transplant rejection
     Dosage: UNK
     Route: 065
     Dates: start: 2024
  35. EVEROLIMUS [Concomitant]
     Active Substance: EVEROLIMUS
     Indication: Immunosuppressant drug therapy
  36. EVEROLIMUS [Concomitant]
     Active Substance: EVEROLIMUS
     Indication: Immunosuppressant drug therapy

REACTIONS (7)
  - Drug-induced liver injury [Unknown]
  - Neurotoxicity [Unknown]
  - Nodular regenerative hyperplasia [Unknown]
  - Febrile neutropenia [Unknown]
  - Cytomegalovirus infection reactivation [Recovered/Resolved]
  - Drug ineffective [Unknown]
  - Intentional product use issue [Unknown]

NARRATIVE: CASE EVENT DATE: 20250101
